FAERS Safety Report 8558484-3 (Version None)
Quarter: 2012Q3

REPORT INFORMATION
  Report Type: 
  Country: None (occurrence: None)
  Receive Date: 20120801
  Receipt Date: 20120724
  Transmission Date: 20120928
  Serious: Yes (Other)
  Sender: FDA-Public Use
  Company Number: US-ABBOTT-12P-163-0948698-00

PATIENT
  Sex: Female
  Weight: 50.848 kg

DRUGS (2)
  1. PERCOCET [Concomitant]
     Indication: PROCEDURAL PAIN
     Dates: start: 20120501
  2. HUMIRA [Suspect]
     Indication: CROHN'S DISEASE
     Route: 058
     Dates: start: 20100601, end: 20120503

REACTIONS (6)
  - THROMBOSIS [None]
  - DECREASED APPETITE [None]
  - FATIGUE [None]
  - PYREXIA [None]
  - ANAL ABSCESS [None]
  - ASTHENIA [None]
